FAERS Safety Report 17560940 (Version 2)
Quarter: 2020Q1

REPORT INFORMATION
  Report Type: Spontaneous
  Country: US (occurrence: US)
  Receive Date: 20200319
  Receipt Date: 20200320
  Transmission Date: 20200409
  Serious: Yes (Hospitalization, Other)
  Sender: FDA-Public Use
  Company Number: US-BAUSCH-BL-2020-007705

PATIENT
  Age: 32 Year
  Sex: Female

DRUGS (12)
  1. RIFAXIMIN. [Suspect]
     Active Substance: RIFAXIMIN
     Indication: HYPERAMMONAEMIC ENCEPHALOPATHY
     Route: 065
  2. D10W [Suspect]
     Active Substance: DEXTROSE\WATER
     Indication: HYPERAMMONAEMIC ENCEPHALOPATHY
     Route: 065
  3. GLYCEROL PHENYLBUTYRATE [Suspect]
     Active Substance: GLYCEROL PHENYLBUTYRATE
     Indication: HYPERAMMONAEMIC ENCEPHALOPATHY
     Route: 065
  4. DEXAMETHASONE. [Suspect]
     Active Substance: DEXAMETHASONE
     Indication: NAUSEA
  5. ARGININE [Suspect]
     Active Substance: ARGININE
     Indication: HYPERAMMONAEMIC ENCEPHALOPATHY
     Route: 065
  6. DEXAMETHASONE. [Suspect]
     Active Substance: DEXAMETHASONE
     Indication: TRANSAMINASES INCREASED
     Route: 065
  7. LACTULOSE. [Suspect]
     Active Substance: LACTULOSE
     Indication: HYPERAMMONAEMIC ENCEPHALOPATHY
     Route: 065
  8. PREDNISONE. [Suspect]
     Active Substance: PREDNISONE
     Indication: RASH
     Route: 065
  9. NIVOLUMAB [Suspect]
     Active Substance: NIVOLUMAB
     Indication: HEPATOCELLULAR CARCINOMA
     Route: 065
  10. NIVOLUMAB [Suspect]
     Active Substance: NIVOLUMAB
     Indication: HEPATOCELLULAR CARCINOMA
  11. SODIUM PHENYLACETATE [Suspect]
     Active Substance: SODIUM PHENYLACETATE
     Indication: HYPERAMMONAEMIC ENCEPHALOPATHY
     Route: 065
  12. CITRULLINE [Suspect]
     Active Substance: CITRULLINE
     Indication: HYPERAMMONAEMIC ENCEPHALOPATHY
     Route: 065

REACTIONS (4)
  - Hyperammonaemic encephalopathy [Not Recovered/Not Resolved]
  - Hepatic steatosis [Unknown]
  - Condition aggravated [Not Recovered/Not Resolved]
  - Therapy partial responder [Unknown]
